FAERS Safety Report 19270997 (Version 1)
Quarter: 2021Q2

REPORT INFORMATION
  Report Type: Spontaneous
  Country: KR (occurrence: KR)
  Receive Date: 20210518
  Receipt Date: 20210518
  Transmission Date: 20210717
  Serious: Yes (Other)
  Sender: FDA-Public Use
  Company Number: KR-ASTRAZENECA-2021A434235

PATIENT
  Age: 70 Year
  Sex: Female
  Weight: 60 kg

DRUGS (3)
  1. IMFINZI [Suspect]
     Active Substance: DURVALUMAB
     Dosage: 10.0MG/KG UNKNOWN
     Route: 042
     Dates: start: 20190108, end: 201911
  2. CRIZOTINIB [Concomitant]
     Active Substance: CRIZOTINIB
  3. PREDNISOLONE. [Concomitant]
     Active Substance: PREDNISOLONE
     Dosage: 0.5 MG/KG, C5: 30MG X 14D, C6: 20MG X 14D, C7: 10MG X 14D, C8: 5MG
     Dates: start: 201902, end: 201905

REACTIONS (2)
  - Malignant neoplasm progression [Unknown]
  - Dyspnoea [Unknown]

NARRATIVE: CASE EVENT DATE: 201902
